FAERS Safety Report 24452843 (Version 1)
Quarter: 2024Q4

REPORT INFORMATION
  Report Type: Spontaneous
  Country: US (occurrence: US)
  Receive Date: 20241017
  Receipt Date: 20241017
  Transmission Date: 20250115
  Serious: Yes (Other)
  Sender: SUNOVION
  Company Number: US-UROVANT SCIENCES GMBH-202404-URV-000589

PATIENT
  Sex: Female

DRUGS (1)
  1. GEMTESA [Suspect]
     Active Substance: VIBEGRON
     Indication: Pollakiuria
     Dosage: UNK
     Route: 065
     Dates: start: 20240411

REACTIONS (2)
  - Urinary retention [Not Recovered/Not Resolved]
  - Faeces discoloured [Not Recovered/Not Resolved]
